FAERS Safety Report 9295940 (Version 2)
Quarter: 2013Q2

REPORT INFORMATION
  Report Type: Spontaneous
  Country: JP (occurrence: JP)
  Receive Date: 20130517
  Receipt Date: 20130611
  Transmission Date: 20140414
  Serious: No
  Sender: FDA-Public Use
  Company Number: JP-009507513-1305JPN008294

PATIENT
  Age: 50 Year
  Sex: Female

DRUGS (6)
  1. EMEND [Suspect]
     Indication: PROPHYLAXIS OF NAUSEA AND VOMITING
     Dosage: 125 MG, ONCE A DAY
     Route: 048
     Dates: start: 20130308, end: 20130308
  2. EMEND [Suspect]
     Dosage: 80 MG, ONCE A DAY
     Route: 048
     Dates: start: 20130309, end: 20130310
  3. OXALIPLATIN [Suspect]
     Indication: COLON CANCER
     Dosage: 130 MG/M2, ONCE
     Route: 041
     Dates: start: 20130308, end: 20130308
  4. CAPECITABINE [Suspect]
     Indication: COLON CANCER
     Dosage: 3000 MG, ONCE
     Route: 048
     Dates: start: 20130308, end: 20130308
  5. ALOXI [Concomitant]
     Dosage: UNK
     Dates: start: 20130308, end: 20130308
  6. DECADRON PHOSPHATE INJECTION [Concomitant]
     Dosage: UNK
     Dates: start: 20130308, end: 20130308

REACTIONS (4)
  - Aspartate aminotransferase increased [Not Recovered/Not Resolved]
  - Alanine aminotransferase increased [Not Recovered/Not Resolved]
  - Neuropathy peripheral [Unknown]
  - Constipation [Unknown]
